FAERS Safety Report 14970906 (Version 1)
Quarter: 2018Q2

REPORT INFORMATION
  Report Type: Spontaneous
  Country: CA (occurrence: CA)
  Receive Date: 20180604
  Receipt Date: 20180604
  Transmission Date: 20180711
  Serious: Yes (Hospitalization, Other)
  Sender: FDA-Public Use
  Company Number: CA-MYLANLABS-2018M1034834

PATIENT
  Sex: Female
  Weight: 84 kg

DRUGS (2)
  1. MYLAN-NITRO PATCH 0.4 [Suspect]
     Active Substance: NITROGLYCERIN
     Indication: ATRIAL FIBRILLATION
     Dosage: 0.4 MG, QH
     Route: 062
  2. INSULIN [Concomitant]
     Active Substance: INSULIN NOS
     Indication: PRODUCT USED FOR UNKNOWN INDICATION
     Dosage: UNK

REACTIONS (6)
  - Atrial fibrillation [Recovering/Resolving]
  - Dementia [Not Recovered/Not Resolved]
  - Incorrect dose administered [Recovering/Resolving]
  - Myocardial infarction [Recovering/Resolving]
  - Pneumonia [Recovered/Resolved]
  - Abdominal pain upper [Recovered/Resolved]
